FAERS Safety Report 9336963 (Version 1)
Quarter: 2013Q2

REPORT INFORMATION
  Report Type: Spontaneous
  Country: US (occurrence: US)
  Receive Date: 20130607
  Receipt Date: 20130607
  Transmission Date: 20140414
  Serious: No
  Sender: FDA-Public Use
  Company Number: US-PFIZER INC-2013144377

PATIENT
  Age: 54 Year
  Sex: Female
  Weight: 83.9 kg

DRUGS (4)
  1. NEURONTIN [Suspect]
     Indication: FIBROMYALGIA
     Dosage: 900 MG, 3X/DAY (THREE 300 MG TABLETS IN MORNING, THREE IN THE AFTERNOON AND THREE AT NIGHT)
  2. NEURONTIN [Suspect]
     Dosage: UNK
     Dates: start: 20130506, end: 201305
  3. ATENOLOL [Concomitant]
     Indication: HEART RATE ABNORMAL
     Dosage: UNK
  4. RANITIDINE [Concomitant]
     Indication: GASTROOESOPHAGEAL REFLUX DISEASE
     Dosage: UNK

REACTIONS (5)
  - Pain [Unknown]
  - Arthralgia [Unknown]
  - Pain in extremity [Unknown]
  - Intentional drug misuse [Unknown]
  - Off label use [Unknown]
